FAERS Safety Report 6279144-8 (Version None)
Quarter: 2009Q3

REPORT INFORMATION
  Report Type: 
  Country: None (occurrence: None)
  Receive Date: 20090720
  Receipt Date: 20090720
  Transmission Date: 20100115
  Serious: Yes (Life-Threatening, Other)
  Sender: FDA-Public Use
  Company Number: None

PATIENT
  Age: 20 Year
  Sex: Female

DRUGS (2)
  1. NAROPIN [Suspect]
     Indication: LABOUR PAIN
     Dates: start: 20090713, end: 20090713
  2. PITOCIN [Concomitant]

REACTIONS (1)
  - CONVULSION [None]
